FAERS Safety Report 18490768 (Version 1)
Quarter: 2020Q4

REPORT INFORMATION
  Report Type: Spontaneous
  Country: US (occurrence: US)
  Receive Date: 20201111
  Receipt Date: 20201111
  Transmission Date: 20210114
  Serious: Yes (Hospitalization)
  Sender: FDA-Public Use
  Company Number: US-STRIDES ARCOLAB LIMITED-2020SP009655

PATIENT
  Age: 58 Year
  Sex: Male

DRUGS (15)
  1. PARACETAMOL [Suspect]
     Active Substance: ACETAMINOPHEN
     Indication: PROCEDURAL HEADACHE
  2. FENTANYL. [Suspect]
     Active Substance: FENTANYL
     Indication: INCISION SITE PAIN
     Dosage: 350 MICROGRAM, UNK
     Route: 065
  3. FENTANYL. [Suspect]
     Active Substance: FENTANYL
     Indication: PROCEDURAL HEADACHE
  4. KETAMINE [Suspect]
     Active Substance: KETAMINE
     Indication: PROCEDURAL HEADACHE
  5. HYDROMORPHONE [Suspect]
     Active Substance: HYDROMORPHONE
     Indication: PROCEDURAL HEADACHE
  6. HYDROCODONE;PARACETAMOL [Concomitant]
     Indication: HEADACHE
     Dosage: UNK
     Route: 048
  7. GABAPENTIN. [Suspect]
     Active Substance: GABAPENTIN
     Indication: PROCEDURAL HEADACHE
     Dosage: 300 MILLIGRAM, UNK
     Route: 065
  8. KETAMINE [Suspect]
     Active Substance: KETAMINE
     Indication: INCISION SITE PAIN
     Dosage: 50 MILLIGRAM, UNK
     Route: 065
  9. OXYCODONE [Suspect]
     Active Substance: OXYCODONE
     Indication: PROCEDURAL HEADACHE
     Dosage: 5 MILLIGRAM, UNK
     Route: 065
  10. GABAPENTIN. [Suspect]
     Active Substance: GABAPENTIN
     Indication: INCISION SITE PAIN
  11. PARACETAMOL [Suspect]
     Active Substance: ACETAMINOPHEN
     Indication: INCISION SITE PAIN
     Dosage: 1000 MILLIGRAM, UNK
     Route: 065
  12. HYDROMORPHONE [Suspect]
     Active Substance: HYDROMORPHONE
     Indication: INCISION SITE PAIN
     Dosage: 3 MILLIGRAM, UNK
     Route: 065
  13. METHOCARBAMOL. [Suspect]
     Active Substance: METHOCARBAMOL
     Indication: INCISION SITE PAIN
     Dosage: 1000 MILLIGRAM, UNK
     Route: 065
  14. METHOCARBAMOL. [Suspect]
     Active Substance: METHOCARBAMOL
     Indication: PROCEDURAL HEADACHE
  15. OXYCODONE [Suspect]
     Active Substance: OXYCODONE
     Indication: INCISION SITE PAIN

REACTIONS (1)
  - Therapy non-responder [Unknown]
